FAERS Safety Report 6188054-6 (Version None)
Quarter: 2009Q2

REPORT INFORMATION
  Report Type: 
  Country: None (occurrence: None)
  Receive Date: 20090513
  Receipt Date: 20090504
  Transmission Date: 20091009
  Serious: Yes (Hospitalization)
  Sender: FDA-Public Use
  Company Number: FR-ASTRAZENECA-2009CG00853

PATIENT
  Age: 31 Year
  Sex: Female

DRUGS (5)
  1. MERONEM [Suspect]
     Route: 042
     Dates: start: 20090211, end: 20090215
  2. DIPRIVAN [Suspect]
     Route: 042
     Dates: start: 20090203, end: 20090211
  3. DAPTOMYCIN [Concomitant]
  4. GENTAMICIN [Concomitant]
  5. ZYVOXID [Concomitant]

REACTIONS (1)
  - CYTOLYTIC HEPATITIS [None]
